FAERS Safety Report 7030806-4 (Version None)
Quarter: 2010Q4

REPORT INFORMATION
  Report Type: 
  Country: None (occurrence: None)
  Receive Date: 20101006
  Receipt Date: 20100923
  Transmission Date: 20110411
  Serious: No
  Sender: FDA-Public Use
  Company Number: US-PFIZER INC-2010121461

PATIENT
  Age: 40 Year
  Sex: Male
  Weight: 98.2 kg

DRUGS (8)
  1. LYRICA [Suspect]
     Indication: NEUROPATHY PERIPHERAL
     Dosage: 150 MG, 3X/DAY
     Route: 048
     Dates: start: 20100101
  2. LYRICA [Suspect]
     Dosage: 150 MG, 2X/DAY
     Route: 048
  3. RITONAVIR [Concomitant]
     Dosage: 100 MG, 2X/DAY
  4. FISH OIL [Concomitant]
     Dosage: UNK DAILY
     Route: 048
  5. RALTEGRAVIR [Concomitant]
     Dosage: 400 MG, 2X/DAY
  6. LIDOCAINE [Concomitant]
     Dosage: UNK, AS NEEDED
     Route: 061
  7. POTASSIUM [Concomitant]
     Indication: MINERAL SUPPLEMENTATION
     Dosage: 595 MG, DAILY
  8. OXYCODONE [Concomitant]
     Dosage: 5 MG, AS NEEDED

REACTIONS (1)
  - SOMNOLENCE [None]
